FAERS Safety Report 9664646 (Version 1)
Quarter: 2013Q4

REPORT INFORMATION
  Report Type: Spontaneous
  Country: TR (occurrence: None)
  Receive Date: 20131031
  Receipt Date: 20131031
  Transmission Date: 20140711
  Serious: Yes (Hospitalization)
  Sender: FDA-Public Use
  Company Number: FK201304763

PATIENT
  Age: 10 Month
  Sex: Female

DRUGS (6)
  1. LEVETIRACETAM [Suspect]
     Indication: EARLY INFANTILE EPILEPTIC ENCEPHALOPATHY WITH BURST-SUPPRESSION
     Dosage: RECOMENDED DOSE
  2. LEVETIRACETAM [Suspect]
     Dosage: RECOMENDED DOSE
  3. VIGABATRIN (VIGABATRIN) [Concomitant]
  4. TOPIRAMATE (TOPIRAMATE) [Concomitant]
  5. CALCIUM FOLINATE (CALCIIUM FOLINATE) [Concomitant]
  6. VITAMIN B6 (PYRIDOXINE HYDROHLORIDE) [Concomitant]

REACTIONS (3)
  - Hypotonia [None]
  - Apathy [None]
  - Accidental overdose [None]
